FAERS Safety Report 19055804 (Version 3)
Quarter: 2021Q2

REPORT INFORMATION
  Report Type: Report from Study
  Country: TH (occurrence: TH)
  Receive Date: 20210325
  Receipt Date: 20210623
  Transmission Date: 20210717
  Serious: Yes (Death, Hospitalization, Other)
  Sender: FDA-Public Use
  Company Number: NVSC2021TH028726

PATIENT
  Sex: Female

DRUGS (1)
  1. KISQALI [Suspect]
     Active Substance: RIBOCICLIB
     Indication: BREAST CANCER METASTATIC
     Dosage: UNK
     Route: 065
     Dates: end: 20210203

REACTIONS (11)
  - Thrombocytopenia [Unknown]
  - Platelet destruction increased [Unknown]
  - Breast cancer metastatic [Unknown]
  - Underdose [Unknown]
  - Product dose omission issue [Unknown]
  - Pulmonary oedema [Unknown]
  - Pneumonia [Fatal]
  - Breast cancer recurrent [Unknown]
  - Platelet count decreased [Unknown]
  - Malignant neoplasm progression [Unknown]
  - Metastases to bone marrow [Unknown]
